FAERS Safety Report 12091331 (Version 2)
Quarter: 2016Q1

REPORT INFORMATION
  Report Type: Spontaneous
  Country: US (occurrence: US)
  Receive Date: 20160218
  Receipt Date: 20160324
  Transmission Date: 20160526
  Serious: Yes (Other)
  Sender: FDA-Public Use
  Company Number: US-PFIZER INC-2016085124

PATIENT
  Age: 57 Year
  Sex: Male

DRUGS (1)
  1. LATANOPROST. [Suspect]
     Active Substance: LATANOPROST
     Indication: NORMAL TENSION GLAUCOMA
     Dosage: 1 GTT IN EACH EYE DAILY (AT NIGHT)
     Route: 047
     Dates: start: 20111013, end: 20141022

REACTIONS (3)
  - Intraocular pressure test abnormal [Recovered/Resolved]
  - Drug intolerance [Unknown]
  - Product substitution issue [Unknown]
